FAERS Safety Report 6119400-7 (Version None)
Quarter: 2009Q1

REPORT INFORMATION
  Report Type: 
  Country: None (occurrence: None)
  Receive Date: 20090316
  Receipt Date: 20090309
  Transmission Date: 20090719
  Serious: Yes (Other)
  Sender: FDA-Public Use
  Company Number: A0772099A

PATIENT
  Age: 52 Year
  Sex: Female

DRUGS (18)
  1. ADVAIR HFA [Suspect]
     Indication: EMPHYSEMA
     Dosage: 1PUFF TWICE PER DAY
     Route: 055
  2. ADVAIR HFA [Suspect]
     Dosage: 1PUFF TWICE PER DAY
     Route: 055
     Dates: start: 20070101
  3. ADVAIR HFA [Suspect]
     Dosage: 1PUFF TWICE PER DAY
     Route: 055
     Dates: start: 20070101, end: 20081101
  4. VALIUM [Concomitant]
  5. ESGIC [Concomitant]
  6. ROBAXIN [Concomitant]
  7. DARVOCET [Concomitant]
  8. VENTOLIN [Concomitant]
  9. SINGULAIR [Concomitant]
  10. CHLORPHENIRAMINE MALEATE AND PSEUDOEPHEDRINE HCL [Concomitant]
  11. K-TAB [Concomitant]
  12. LASIX [Concomitant]
  13. SPIRONOLACTONE [Concomitant]
  14. PROTONIX [Concomitant]
  15. THEO-DUR [Concomitant]
  16. VITAMIN TAB [Concomitant]
  17. ARISTOCORT CREAM [Concomitant]
  18. NITROGLYCERIN [Concomitant]

REACTIONS (6)
  - ARTHRALGIA [None]
  - BRONCHITIS [None]
  - OSTEOARTHRITIS [None]
  - PNEUMONIA [None]
  - RHEUMATOID ARTHRITIS [None]
  - VISUAL IMPAIRMENT [None]
